FAERS Safety Report 13960492 (Version 1)
Quarter: 2017Q3

REPORT INFORMATION
  Report Type: Spontaneous
  Country: FR (occurrence: FR)
  Receive Date: 20170912
  Receipt Date: 20170912
  Transmission Date: 20171128
  Serious: Yes (Hospitalization, Other)
  Sender: FDA-Public Use
  Company Number: FR-PFIZER INC-2017385441

PATIENT
  Age: 73 Year
  Sex: Female

DRUGS (8)
  1. KEPPRA [Suspect]
     Active Substance: LEVETIRACETAM
     Indication: CONVULSION PROPHYLAXIS
     Dosage: 500 MG, 2X/DAY
     Route: 048
     Dates: start: 2017
  2. INEXIUM [Suspect]
     Active Substance: ESOMEPRAZOLE
     Indication: PROPHYLAXIS AGAINST GASTROINTESTINAL ULCER
     Dosage: UNK
     Route: 048
  3. FUNGIZONE [Concomitant]
     Active Substance: AMPHOTERICIN B
     Route: 002
  4. PRIMPERAN [Suspect]
     Active Substance: METOCLOPRAMIDE HYDROCHLORIDE
     Indication: ANTIEMETIC SUPPORTIVE CARE
     Dosage: UNK
     Route: 048
  5. MEDROL [Suspect]
     Active Substance: METHYLPREDNISOLONE
     Indication: GLIOBLASTOMA
     Dosage: 16 MG, 4X/DAY
     Route: 048
     Dates: end: 20170605
  6. URBANYL [Suspect]
     Active Substance: CLOBAZAM
     Indication: CONVULSION PROPHYLAXIS
     Dosage: UNK
     Route: 048
  7. SODIUM BICARBONATE. [Concomitant]
     Active Substance: SODIUM BICARBONATE
     Route: 002
  8. TEMODAL [Suspect]
     Active Substance: TEMOZOLOMIDE
     Indication: GLIOBLASTOMA
     Dosage: 110 MG, 1X/DAY
     Route: 048

REACTIONS (2)
  - Escherichia pyelonephritis [Unknown]
  - Type 2 diabetes mellitus [Not Recovered/Not Resolved]

NARRATIVE: CASE EVENT DATE: 20170606
